FAERS Safety Report 7579498-6 (Version None)
Quarter: 2011Q2

REPORT INFORMATION
  Report Type: 
  Country: None (occurrence: None)
  Receive Date: 20110629
  Receipt Date: 20080915
  Transmission Date: 20111010
  Serious: Yes (Death, Other)
  Sender: FDA-Public Use
  Company Number: US-BAYER-200833435NA

PATIENT
  Age: 73 Year
  Sex: Male
  Weight: 102 kg

DRUGS (17)
  1. FENTANYL [Concomitant]
     Dosage: UNK
     Dates: start: 20060912, end: 20060912
  2. TRASYLOL [Suspect]
     Dosage: INFUSION DOSE NOT DOCUMENTED
     Dates: start: 20060912, end: 20060912
  3. COZAAR [Concomitant]
     Dosage: 50 MG, BID
  4. LASIX [Concomitant]
     Dosage: 60 MG, QD
  5. MORPHINE [Concomitant]
     Dosage: UNK
     Dates: start: 20060912, end: 20060912
  6. TRASYLOL [Suspect]
     Indication: CORONARY ARTERY BYPASS
     Dosage: LOADING DOSE NOT DOCUMENTED
     Dates: start: 20060912, end: 20060912
  7. METFORMIN HCL [Concomitant]
     Dosage: 500 MG, BID
  8. GLIPIZIDE [Concomitant]
     Dosage: 5MG-1/2MG ONCE EVERY DAY
  9. INDOMETHACIN [Concomitant]
     Dosage: UNK, AS NEEDED
     Dates: start: 20020101
  10. LEVAQUIN [Concomitant]
     Dosage: UNK
     Dates: start: 20060913
  11. RED BLOOD CELLS [Concomitant]
     Dosage: 2 U, UNK
     Route: 042
     Dates: start: 20060912
  12. ATENOLOL [Concomitant]
     Dosage: 25 MG, QD
  13. PROTAMINE SULFATE [Concomitant]
     Dosage: UNK
     Dates: start: 20060912, end: 20060912
  14. LEVOPHED [Concomitant]
     Dosage: UNK
     Dates: start: 20060912, end: 20060924
  15. TRASYLOL [Suspect]
     Indication: AORTIC VALVE REPLACEMENT
     Dosage: 200 ML, ONCE, CARDIOPULMONARY BYPASS PRIME
     Dates: start: 20060912, end: 20060912
  16. FLOMAX [Concomitant]
     Dosage: 0.4 MG, QD
  17. PROTONIX [Concomitant]
     Dosage: 40 MG, QD

REACTIONS (9)
  - UNEVALUABLE EVENT [None]
  - FEAR [None]
  - INJURY [None]
  - ANXIETY [None]
  - RENAL FAILURE [None]
  - DEPRESSION [None]
  - ANHEDONIA [None]
  - DEATH [None]
  - PAIN [None]
